FAERS Safety Report 7298714-1 (Version None)
Quarter: 2011Q1

REPORT INFORMATION
  Report Type: 
  Country: None (occurrence: None)
  Receive Date: 20110204
  Receipt Date: 20110127
  Transmission Date: 20110831
  Serious: Yes (Other)
  Sender: FDA-Public Use
  Company Number: 2010SP064810

PATIENT
  Sex: Female

DRUGS (1)
  1. DIPROPHOS (BETAMETHASONE SODIUM PHOSPHATE/DIPROPIONATE) [Suspect]
     Indication: BONE PAIN
     Dosage: 7 MG, ONCE
     Dates: start: 20090630, end: 20100630

REACTIONS (4)
  - ABDOMINAL PAIN UPPER [None]
  - MENORRHAGIA [None]
  - BLOOD IRON DECREASED [None]
  - ABDOMINAL DISTENSION [None]
